FAERS Safety Report 15034228 (Version 1)
Quarter: 2018Q2

REPORT INFORMATION
  Report Type: Spontaneous
  Country: BR (occurrence: BR)
  Receive Date: 20180620
  Receipt Date: 20180620
  Transmission Date: 20180711
  Serious: Yes (Hospitalization)
  Sender: FDA-Public Use
  Company Number: BR-B.I. PHARMACEUTICALS,INC./RIDGEFIELD-2018-BI-014926

PATIENT
  Age: 60 Year
  Sex: Female
  Weight: 95 kg

DRUGS (11)
  1. ATENSINA [Suspect]
     Active Substance: CLONIDINE
     Route: 048
     Dates: start: 201701
  2. PERIDAL [Concomitant]
     Indication: PAIN
     Route: 060
     Dates: start: 2010
  3. ATENSINA [Suspect]
     Active Substance: CLONIDINE
     Indication: HYPERTENSION
     Route: 048
     Dates: start: 2015, end: 201701
  4. DAFLON [Concomitant]
     Indication: CARDIOVASCULAR DISORDER
     Route: 048
  5. BENICAR [Concomitant]
     Active Substance: OLMESARTAN MEDOXOMIL
     Indication: HYPERTENSION
     Route: 048
     Dates: start: 1987
  6. ATENSINA [Suspect]
     Active Substance: CLONIDINE
     Route: 048
  7. INSULIN [Concomitant]
     Active Substance: INSULIN NOS
     Indication: DIABETES MELLITUS
     Route: 058
     Dates: start: 2003
  8. CEBRALAT [Concomitant]
     Active Substance: CILOSTAZOL
     Indication: CARDIOVASCULAR DISORDER
     Route: 048
  9. ATENSINA [Suspect]
     Active Substance: CLONIDINE
     Route: 048
     Dates: start: 2013, end: 201701
  10. ATENSINA [Suspect]
     Active Substance: CLONIDINE
     Route: 048
     Dates: start: 201701
  11. DIAMICRON [Concomitant]
     Active Substance: GLICLAZIDE
     Indication: DIURETIC THERAPY
     Dosage: ONSET DATE- 5 -6 YEARS AGO
     Route: 048

REACTIONS (7)
  - Urinary retention [Not Recovered/Not Resolved]
  - Drug ineffective [Recovered/Resolved]
  - Dizziness [Not Recovered/Not Resolved]
  - Hypertension [Not Recovered/Not Resolved]
  - Hyperkalaemia [Not Recovered/Not Resolved]
  - Bacterial infection [Not Recovered/Not Resolved]
  - Drug ineffective [Not Recovered/Not Resolved]

NARRATIVE: CASE EVENT DATE: 201804
